FAERS Safety Report 15822336 (Version 2)
Quarter: 2019Q2

REPORT INFORMATION
  Report Type: Spontaneous
  Country: DE (occurrence: DE)
  Receive Date: 20190114
  Receipt Date: 20190530
  Transmission Date: 20190711
  Serious: Yes (Other)
  Sender: FDA-Public Use
  Company Number: PHHY2019DE005582

PATIENT
  Age: 42 Year
  Sex: Male

DRUGS (2)
  1. PANOBINOSTAT [Suspect]
     Active Substance: PANOBINOSTAT
     Indication: BURKITT^S LYMPHOMA
     Dosage: 20 MG, Q3W
     Route: 065
     Dates: start: 20160321, end: 20160511
  2. PANOBINOSTAT [Suspect]
     Active Substance: PANOBINOSTAT
     Indication: LYMPHOCYTIC LEUKAEMIA

REACTIONS (4)
  - Burkitt^s lymphoma [Unknown]
  - Malignant neoplasm progression [Unknown]
  - Product use in unapproved indication [Unknown]
  - Drug resistance [Unknown]
